FAERS Safety Report 5197904-1 (Version None)
Quarter: 2006Q4

REPORT INFORMATION
  Report Type: 
  Country: None (occurrence: None)
  Receive Date: 20061228
  Receipt Date: 20061219
  Transmission Date: 20070319
  Serious: Yes (Death)
  Sender: FDA-Public Use
  Company Number: 163-21880-06100207

PATIENT
  Age: 89 Year
  Sex: Female

DRUGS (8)
  1. REVLIMID [Suspect]
     Indication: MYELODYSPLASTIC SYNDROME
     Dosage: SEE IMAGE
     Route: 048
     Dates: start: 20060916, end: 20060928
  2. REVLIMID [Suspect]
     Indication: MYELODYSPLASTIC SYNDROME
     Dosage: SEE IMAGE
     Route: 048
     Dates: start: 20060828
  3. IPARTROPIUM BROMIDE (IPRATROPIUM BROMIDE) (INHALANT) [Concomitant]
  4. ALBUTEROL (SALBUTAMOL) (INHALANT) [Concomitant]
  5. LASIX [Concomitant]
  6. OXYGEN (OXYGEN) [Concomitant]
  7. POTASSIUM CHLORIDE [Concomitant]
  8. ZOROXYLIN [Concomitant]

REACTIONS (3)
  - CHRONIC OBSTRUCTIVE PULMONARY DISEASE [None]
  - PNEUMONIA [None]
  - RESPIRATORY FAILURE [None]
